FAERS Safety Report 9181490 (Version 1)
Quarter: 2013Q1

REPORT INFORMATION
  Report Type: Spontaneous
  Country: US (occurrence: None)
  Receive Date: 20120614
  Receipt Date: 20120614
  Transmission Date: 20140127
  Serious: Yes (Hospitalization)
  Sender: FDA-Public Use
  Company Number: 2012US000686

PATIENT
  Sex: Male
  Weight: 113 kg

DRUGS (3)
  1. PROGRAF (TACROLIMUS) CAPSULE, 1MG [Suspect]
     Route: 048
  2. GABAPENTIN (GABAPENTIN) CAPSULE [Concomitant]
  3. LASIX (FUROSEMIDE) CAPSULE [Concomitant]

REACTIONS (1)
  - Pneumonia [None]
